FAERS Safety Report 5981305-X (Version None)
Quarter: 2008Q4

REPORT INFORMATION
  Report Type: 
  Country: None (occurrence: None)
  Receive Date: 20081126
  Receipt Date: 20080910
  Transmission Date: 20090506
  Serious: Yes (Hospitalization, Other)
  Sender: FDA-Public Use
  Company Number: 2008BH009164

PATIENT
  Age: 68 Year
  Sex: Male

DRUGS (2)
  1. DIANEAL [Suspect]
     Indication: PERITONEAL DIALYSIS
     Dosage: UNK; IP
     Route: 033
     Dates: end: 20080909
  2. DIANEAL [Suspect]
     Indication: PERITONEAL DIALYSIS
     Dosage: UNK; IP
     Route: 033
     Dates: end: 20080909

REACTIONS (3)
  - PERITONEAL MEMBRANE FAILURE [None]
  - PERITONITIS BACTERIAL [None]
  - PYREXIA [None]
